FAERS Safety Report 8678161 (Version 4)
Quarter: 2013Q2

REPORT INFORMATION
  Report Type: Spontaneous
  Country: DK (occurrence: DK)
  Receive Date: 20120723
  Receipt Date: 20130510
  Transmission Date: 20140414
  Serious: Yes (Other)
  Sender: FDA-Public Use
  Company Number: DK-ELI_LILLY_AND_COMPANY-DK201207006278

PATIENT
  Sex: Male
  Weight: 115 kg

DRUGS (1)
  1. EFIENT [Suspect]
     Dosage: 60 MG LOADING DOSE
     Route: 065
     Dates: start: 20120508

REACTIONS (1)
  - Cardiac failure [Unknown]
